FAERS Safety Report 21643793 (Version 1)
Quarter: 2022Q4

REPORT INFORMATION
  Report Type: Spontaneous
  Country: US (occurrence: US)
  Receive Date: 20221125
  Receipt Date: 20221125
  Transmission Date: 20230113
  Serious: Yes (Life-Threatening, Hospitalization, Other)
  Sender: FDA-Public Use
  Company Number: US-PFIZER INC-PV202200108899

PATIENT
  Age: 16 Year
  Sex: Male
  Weight: 88 kg

DRUGS (47)
  1. DEXMEDETOMIDINE HYDROCHLORIDE [Suspect]
     Active Substance: DEXMEDETOMIDINE HYDROCHLORIDE
     Indication: Anaesthesia
     Dosage: 0.3 UG/KG/H, AT 2ND HOUR
  2. DEXMEDETOMIDINE HYDROCHLORIDE [Suspect]
     Active Substance: DEXMEDETOMIDINE HYDROCHLORIDE
     Dosage: 0.3 UG/KG/H, AT 3RD HOUR
  3. DEXMEDETOMIDINE HYDROCHLORIDE [Suspect]
     Active Substance: DEXMEDETOMIDINE HYDROCHLORIDE
     Dosage: 0.2 UG/KG/H, AT 4TH HOUR
  4. PROPOFOL [Concomitant]
     Active Substance: PROPOFOL
     Indication: Anaesthesia
     Dosage: 200 MG, AT INDUCTION
  5. PROPOFOL [Concomitant]
     Active Substance: PROPOFOL
     Dosage: 100 MG, AT 1ST HOUR
  6. PROPOFOL [Concomitant]
     Active Substance: PROPOFOL
     Indication: Anaesthesia
     Dosage: 150-175 UG/KG/MIN, INFUSION, AT 1ST HOUR
     Route: 042
  7. PROPOFOL [Concomitant]
     Active Substance: PROPOFOL
     Dosage: 150-175 UG/KG/MIN, INFUSION, AT 2ND HOUR
     Route: 042
  8. PROPOFOL [Concomitant]
     Active Substance: PROPOFOL
     Dosage: 150 UG/KG/MIN, INFUSION, AT 3RD HOUR
     Route: 042
  9. PROPOFOL [Concomitant]
     Active Substance: PROPOFOL
     Dosage: 150 UG/KG/MIN, INFUSION, AT 4TH HOUR
     Route: 042
  10. PROPOFOL [Concomitant]
     Active Substance: PROPOFOL
     Dosage: 150 UG/KG/MIN, INFUSION, AT 5TH HOUR
     Route: 042
  11. PROPOFOL [Concomitant]
     Active Substance: PROPOFOL
     Dosage: 80-150 UG/KG/MIN, INFUSION, AT 6TH HOUR
     Route: 042
  12. PROPOFOL [Concomitant]
     Active Substance: PROPOFOL
     Dosage: 80 UG/KG/MIN, INFUSION, AT 7TH HOUR
     Route: 042
  13. MIDAZOLAM [Concomitant]
     Active Substance: MIDAZOLAM
     Indication: Anaesthesia
     Dosage: 2 MG; AT INDUCTION
  14. ROCURONIUM [Concomitant]
     Active Substance: ROCURONIUM BROMIDE
     Indication: Anaesthesia
     Dosage: 50 MG, AT INDUCTION
  15. ROCURONIUM [Concomitant]
     Active Substance: ROCURONIUM BROMIDE
     Dosage: 70 MG, AT 1ST HOUR
  16. FENTANYL [Concomitant]
     Active Substance: FENTANYL
     Indication: Anaesthesia
     Dosage: 50 UG, AT INDUCTION
  17. FENTANYL [Concomitant]
     Active Substance: FENTANYL
     Dosage: 50 UG, AT 1ST HOUR
  18. LIDOCAINE [Concomitant]
     Active Substance: LIDOCAINE
     Indication: Anaesthesia
     Dosage: 100 MG, AT INDUCTION
  19. REMIFENTANIL [Concomitant]
     Active Substance: REMIFENTANIL
     Indication: Analgesic therapy
     Dosage: 0.2 MC/KG/H, AT INDUCTION
  20. REMIFENTANIL [Concomitant]
     Active Substance: REMIFENTANIL
     Dosage: 0.25-0.3 MC/KG/H, AT 1ST HOUR
  21. REMIFENTANIL [Concomitant]
     Active Substance: REMIFENTANIL
     Dosage: 0.3 MC/KG/H, AT 2ND HOUR
  22. REMIFENTANIL [Concomitant]
     Active Substance: REMIFENTANIL
     Dosage: 0.3 MC/KG/H, AT 3RD HOUR
  23. REMIFENTANIL [Concomitant]
     Active Substance: REMIFENTANIL
     Dosage: 0.3 MC/KG/H, AT 4TH HOUR
  24. REMIFENTANIL [Concomitant]
     Active Substance: REMIFENTANIL
     Dosage: 0.3 MC/KG/H, AT 5TH HOUR
  25. REMIFENTANIL [Concomitant]
     Active Substance: REMIFENTANIL
     Dosage: 0.3 MC/KG/H, AT 6TH HOUR
  26. REMIFENTANIL [Concomitant]
     Active Substance: REMIFENTANIL
     Dosage: 0.3 MC/KG/H, AT 7TH HOUR
  27. LACTATED RINGERS SOLUTION [Concomitant]
     Active Substance: CALCIUM CHLORIDE\POTASSIUM CHLORIDE\SODIUM CHLORIDE\SODIUM LACTATE
     Dosage: 75 ML, AT INDUCTION
  28. LACTATED RINGERS SOLUTION [Concomitant]
     Active Substance: CALCIUM CHLORIDE\POTASSIUM CHLORIDE\SODIUM CHLORIDE\SODIUM LACTATE
     Dosage: 1000 ML, AT 1ST HOUR
  29. LACTATED RINGERS SOLUTION [Concomitant]
     Active Substance: CALCIUM CHLORIDE\POTASSIUM CHLORIDE\SODIUM CHLORIDE\SODIUM LACTATE
     Dosage: 75 ML, AT 2ND HOUR
  30. LACTATED RINGERS SOLUTION [Concomitant]
     Active Substance: CALCIUM CHLORIDE\POTASSIUM CHLORIDE\SODIUM CHLORIDE\SODIUM LACTATE
     Dosage: 75 ML, AT 3RD HOUR
  31. LACTATED RINGERS SOLUTION [Concomitant]
     Active Substance: CALCIUM CHLORIDE\POTASSIUM CHLORIDE\SODIUM CHLORIDE\SODIUM LACTATE
     Dosage: 75 ML, AT 4TH HOUR
  32. LACTATED RINGERS SOLUTION [Concomitant]
     Active Substance: CALCIUM CHLORIDE\POTASSIUM CHLORIDE\SODIUM CHLORIDE\SODIUM LACTATE
     Dosage: 700 ML, AT 5TH HOUR
  33. LACTATED RINGERS SOLUTION [Concomitant]
     Active Substance: CALCIUM CHLORIDE\POTASSIUM CHLORIDE\SODIUM CHLORIDE\SODIUM LACTATE
     Dosage: 500 ML, AT 6TH HOUR
  34. LACTATED RINGERS SOLUTION [Concomitant]
     Active Substance: CALCIUM CHLORIDE\POTASSIUM CHLORIDE\SODIUM CHLORIDE\SODIUM LACTATE
     Dosage: 500 ML, AT 7TH HOUR
  35. LACTATED RINGERS SOLUTION [Concomitant]
     Active Substance: CALCIUM CHLORIDE\POTASSIUM CHLORIDE\SODIUM CHLORIDE\SODIUM LACTATE
     Dosage: 500 ML, AT 8TH HOUR
  36. SODIUM CHLORIDE [Concomitant]
     Active Substance: SODIUM CHLORIDE
     Dosage: 500 ML, AT 4TH HOUR
  37. SODIUM CHLORIDE [Concomitant]
     Active Substance: SODIUM CHLORIDE
     Dosage: 500 ML, AT 5TH HOUR
  38. SODIUM CHLORIDE [Concomitant]
     Active Substance: SODIUM CHLORIDE
     Dosage: 1000 ML, AT 8TH HOUR
  39. SEVOFLURANE [Concomitant]
     Active Substance: SEVOFLURANE
     Indication: Anaesthesia
     Dosage: 0.2 -0.6 MAC, AT 1ST HOUR
  40. SEVOFLURANE [Concomitant]
     Active Substance: SEVOFLURANE
     Dosage: 0.4 -0.5 MAC, AT 2ND HOUR
  41. SEVOFLURANE [Concomitant]
     Active Substance: SEVOFLURANE
     Dosage: 0.2 -0.3 MAC, AT 3RD HOUR
  42. SEVOFLURANE [Concomitant]
     Active Substance: SEVOFLURANE
     Dosage: 0.1 MAC, AT 4TH HOUR
  43. SEVOFLURANE [Concomitant]
     Active Substance: SEVOFLURANE
     Dosage: 0.3-0.5 MAC, AT 5TH HOUR
  44. SEVOFLURANE [Concomitant]
     Active Substance: SEVOFLURANE
     Dosage: 0.5-0.6 MAC, AT 6TH HOUR
  45. SEVOFLURANE [Concomitant]
     Active Substance: SEVOFLURANE
     Dosage: 0.6-0.8 MAC, AT 7TH HOUR
  46. SEVOFLURANE [Concomitant]
     Active Substance: SEVOFLURANE
     Dosage: 0.2-0.7 MAC, AT 8TH HOUR
  47. ALBUMIN HUMAN [Concomitant]
     Active Substance: ALBUMIN HUMAN
     Dosage: 500 ML, AT 2ND HOUR

REACTIONS (1)
  - Diabetes insipidus [Recovered/Resolved]
